FAERS Safety Report 13693836 (Version 2)
Quarter: 2017Q3

REPORT INFORMATION
  Report Type: Spontaneous
  Country: US (occurrence: US)
  Receive Date: 20170627
  Receipt Date: 20170809
  Transmission Date: 20171127
  Serious: Yes (Death, Hospitalization, Disabling, Other)
  Sender: FDA-Public Use
  Company Number: US-ROCHE-1952681

PATIENT
  Age: 76 Year
  Sex: Female

DRUGS (3)
  1. METHOTREXATE. [Concomitant]
     Active Substance: METHOTREXATE
  2. SUPPLEMENTAL O2 [Concomitant]
  3. RITUXAN [Suspect]
     Active Substance: RITUXIMAB
     Indication: VASCULITIS
     Route: 065

REACTIONS (7)
  - Gait disturbance [Unknown]
  - Neuropathy peripheral [Unknown]
  - Dysstasia [Unknown]
  - Asthenia [Unknown]
  - Weight decreased [Unknown]
  - Lung disorder [Fatal]
  - Eating disorder [Unknown]
